FAERS Safety Report 7111262-4 (Version None)
Quarter: 2010Q4

REPORT INFORMATION
  Report Type: 
  Country: None (occurrence: None)
  Receive Date: 20101118
  Receipt Date: 20100127
  Transmission Date: 20110411
  Serious: No
  Sender: FDA-Public Use
  Company Number: US-PFIZER INC-2010012614

PATIENT

DRUGS (1)
  1. ZYVOX [Suspect]
     Indication: URINARY TRACT INFECTION ENTEROCOCCAL
     Dosage: UNK

REACTIONS (1)
  - DEPRESSION [None]
